FAERS Safety Report 7631660-X (Version None)
Quarter: 2011Q3

REPORT INFORMATION
  Report Type: 
  Country: None (occurrence: None)
  Receive Date: 20110725
  Receipt Date: 20110217
  Transmission Date: 20111222
  Serious: No
  Sender: FDA-Public Use
  Company Number: US-BRISTOL-MYERS SQUIBB COMPANY-15537079

PATIENT
  Age: 82 Year
  Sex: Male

DRUGS (22)
  1. METOPROLOL TARTRATE [Concomitant]
  2. DIAZEPAM [Concomitant]
  3. LORAZEPAM [Concomitant]
  4. DULCOLAX [Concomitant]
  5. ALTACE [Concomitant]
  6. VALIUM [Concomitant]
  7. NASONEX [Concomitant]
  8. DIGOXIN [Concomitant]
     Dosage: 1 DF = 0.125 UNITS NOS
  9. LANOXIN [Concomitant]
  10. LORATADINE [Concomitant]
  11. ASPIRIN [Concomitant]
  12. CLARITIN [Concomitant]
  13. CORDARONE [Concomitant]
     Dates: start: 20110121
  14. SEROQUEL [Concomitant]
     Dosage: SEROQUIL XR:1 DF = 1 UNITS NOS
  15. LEVOTHYROXINE SODIUM [Concomitant]
  16. COMBIVENT [Concomitant]
  17. ATORVASTATIN [Concomitant]
  18. COUMADIN [Suspect]
     Dosage: 1DF:5MG AND 2.5MG ON MONDAYS
     Route: 048
     Dates: start: 20100801
  19. LIPITOR [Concomitant]
  20. ASPIRIN [Concomitant]
  21. IMODIUM [Concomitant]
  22. GLYBURIDE [Concomitant]
     Dosage: 1/5 DAILY

REACTIONS (2)
  - DYSGEUSIA [None]
  - WEIGHT DECREASED [None]
